FAERS Safety Report 23314296 (Version 3)
Quarter: 2024Q1

REPORT INFORMATION
  Report Type: Spontaneous
  Country: JP (occurrence: JP)
  Receive Date: 20231219
  Receipt Date: 20240130
  Transmission Date: 20240410
  Serious: Yes (Other)
  Sender: FDA-Public Use
  Company Number: JP-Merck Healthcare KGaA-2023494841

PATIENT
  Age: 67 Year
  Sex: Female

DRUGS (4)
  1. METGLUCO [Suspect]
     Active Substance: METFORMIN HYDROCHLORIDE
     Indication: Type 2 diabetes mellitus
     Route: 048
  2. GLIMEPIRIDE [Suspect]
     Active Substance: GLIMEPIRIDE
     Indication: Product used for unknown indication
  3. JARDIANCE [Suspect]
     Active Substance: EMPAGLIFLOZIN
     Indication: Product used for unknown indication
     Route: 048
  4. RYBELSUS [Suspect]
     Active Substance: SEMAGLUTIDE
     Indication: Product used for unknown indication
     Route: 048

REACTIONS (1)
  - Muscle disorder [Unknown]
